FAERS Safety Report 5291833-0 (Version None)
Quarter: 2007Q2

REPORT INFORMATION
  Report Type: 
  Country: None (occurrence: None)
  Receive Date: 20070410
  Receipt Date: 20070330
  Transmission Date: 20071010
  Serious: No
  Sender: FDA-Public Use
  Company Number: 2006UW07681

PATIENT
  Age: 10878 Day
  Sex: Female
  Weight: 100 kg

DRUGS (3)
  1. SEROQUEL [Suspect]
     Indication: ANXIETY
     Route: 048
     Dates: start: 20011001, end: 20051112
  2. SEROQUEL [Suspect]
     Indication: DEPRESSION
     Route: 048
     Dates: start: 20011001, end: 20051112
  3. SEROQUEL [Suspect]
     Indication: SLEEP DISORDER
     Route: 048
     Dates: start: 20011001, end: 20051112

REACTIONS (1)
  - DIABETES MELLITUS [None]
